FAERS Safety Report 13314259 (Version 1)
Quarter: 2017Q1

REPORT INFORMATION
  Report Type: Spontaneous
  Country: FR (occurrence: FR)
  Receive Date: 20170309
  Receipt Date: 20170309
  Transmission Date: 20170428
  Serious: Yes (Hospitalization, Other)
  Sender: FDA-Public Use
  Company Number: FR-BAYER-2017-024249

PATIENT
  Age: 55 Year
  Sex: Male
  Weight: 91 kg

DRUGS (2)
  1. STIVARGA [Suspect]
     Active Substance: REGORAFENIB
     Indication: COLON CANCER METASTATIC
     Dosage: 160 MG, QD
     Dates: start: 20131007
  2. STIVARGA [Suspect]
     Active Substance: REGORAFENIB
     Indication: COLON CANCER METASTATIC
     Dosage: UNK
     Dates: end: 201404

REACTIONS (24)
  - Vomiting [None]
  - Hyperaesthesia [None]
  - Palmoplantar keratoderma [None]
  - Neuralgia [None]
  - Malnutrition [None]
  - Ascites [None]
  - Dermatosis [None]
  - Bile duct obstruction [None]
  - Headache [None]
  - Faeces discoloured [None]
  - Abdominal pain upper [None]
  - Dysphonia [None]
  - Night sweats [None]
  - Stomatitis [None]
  - Decreased appetite [Recovered/Resolved]
  - Abdominal pain [None]
  - Pain in extremity [None]
  - Hyperkeratosis [None]
  - Feeling hot [None]
  - Asthenia [None]
  - Sleep disorder [None]
  - Myalgia [None]
  - General physical health deterioration [None]
  - Hepatic pain [None]

NARRATIVE: CASE EVENT DATE: 201310
